FAERS Safety Report 13260947 (Version 1)
Quarter: 2017Q1

REPORT INFORMATION
  Report Type: Spontaneous
  Country: US (occurrence: US)
  Receive Date: 20170222
  Receipt Date: 20170222
  Transmission Date: 20170428
  Serious: No
  Sender: FDA-Public Use
  Company Number: US-ALLERGAN-1669839US

PATIENT
  Sex: Female

DRUGS (1)
  1. TAZORAC [Suspect]
     Active Substance: TAZAROTENE
     Indication: PRODUCT USED FOR UNKNOWN INDICATION
     Route: 061

REACTIONS (2)
  - Skin exfoliation [Not Recovered/Not Resolved]
  - Drug dose omission [Unknown]
